FAERS Safety Report 15673901 (Version 2)
Quarter: 2018Q4

REPORT INFORMATION
  Report Type: Spontaneous
  Country: US (occurrence: US)
  Receive Date: 20181129
  Receipt Date: 20181220
  Transmission Date: 20190205
  Serious: Yes (Life-Threatening, Hospitalization, Other)
  Sender: FDA-Public Use
  Company Number: US-GILEAD-2018-0377335

PATIENT
  Age: 31 Year
  Sex: Female
  Weight: 44.9 kg

DRUGS (5)
  1. ENOXAPARIN [Concomitant]
     Active Substance: ENOXAPARIN
     Indication: PULMONARY EMBOLISM
  2. FLUDARABINE [Concomitant]
     Active Substance: FLUDARABINE PHOSPHATE
     Indication: BONE MARROW CONDITIONING REGIMEN
     Dosage: 45 MG
     Route: 065
     Dates: start: 20180830, end: 20180901
  3. CYCLOPHOSPHAMIDE. [Concomitant]
     Active Substance: CYCLOPHOSPHAMIDE
     Indication: BONE MARROW CONDITIONING REGIMEN
     Dosage: 740 MG
     Route: 065
     Dates: start: 20180830, end: 20180901
  4. YESCARTA [Suspect]
     Active Substance: AXICABTAGENE CILOLEUCEL
     Indication: DIFFUSE LARGE B-CELL LYMPHOMA
     Dosage: UNK, SINGLE
     Route: 042
     Dates: start: 20180913, end: 20180913
  5. KEPPRA [Concomitant]
     Active Substance: LEVETIRACETAM
     Dosage: 750 MG, BID
     Dates: start: 20180913, end: 20181106

REACTIONS (16)
  - Abdominal pain [Unknown]
  - Tachypnoea [Recovered/Resolved]
  - Neurotoxicity [Recovered/Resolved]
  - Depression [Unknown]
  - Pyrexia [Recovered/Resolved]
  - Central nervous system lesion [Recovered/Resolved]
  - Cytokine release syndrome [Recovered/Resolved]
  - Thrombocytopenia [Unknown]
  - Stress [Unknown]
  - Encephalopathy [Recovered/Resolved]
  - Hypotension [Recovered/Resolved]
  - Tachycardia [Recovered/Resolved]
  - Gastrointestinal haemorrhage [Recovered/Resolved]
  - Neutropenia [Unknown]
  - Anaemia [Unknown]
  - Anxiety [Unknown]

NARRATIVE: CASE EVENT DATE: 20180919
